FAERS Safety Report 8307680-9 (Version None)
Quarter: 2012Q2

REPORT INFORMATION
  Report Type: 
  Country: None (occurrence: None)
  Receive Date: 20120424
  Receipt Date: 20120424
  Transmission Date: 20120825
  Serious: Yes (Other)
  Sender: FDA-Public Use
  Company Number: None

PATIENT
  Sex: Female

DRUGS (2)
  1. BUPROFEN OTC [Concomitant]
     Route: 048
  2. CYMBALTA [Suspect]
     Indication: NERVE INJURY
     Dosage: ONE A DAY
     Route: 048
     Dates: start: 20120331, end: 20120416

REACTIONS (6)
  - FATIGUE [None]
  - PRURITUS [None]
  - RASH [None]
  - URINARY RETENTION [None]
  - NAUSEA [None]
  - FORMICATION [None]
